FAERS Safety Report 18468834 (Version 1)
Quarter: 2020Q4

REPORT INFORMATION
  Report Type: Spontaneous
  Country: US (occurrence: US)
  Receive Date: 20201105
  Receipt Date: 20201105
  Transmission Date: 20210114
  Serious: No
  Sender: FDA-Public Use
  Company Number: None

PATIENT
  Age: 85 Year
  Sex: Male
  Weight: 105.75 kg

DRUGS (9)
  1. ABIRATERONE ACETATE. [Suspect]
     Active Substance: ABIRATERONE ACETATE
     Indication: PROSTATE CANCER
     Route: 048
     Dates: start: 20190914
  2. ZOCOR [Concomitant]
     Active Substance: SIMVASTATIN
  3. ELIQUIS [Concomitant]
     Active Substance: APIXABAN
  4. CASODEX [Concomitant]
     Active Substance: BICALUTAMIDE
  5. ASPIRIN 81MG [Concomitant]
     Active Substance: ASPIRIN
  6. FISH OIL [Concomitant]
     Active Substance: FISH OIL
  7. LISINOPRIL. [Concomitant]
     Active Substance: LISINOPRIL
  8. PREDNISONE. [Suspect]
     Active Substance: PREDNISONE
     Indication: PROSTATE CANCER
     Route: 048
     Dates: start: 20190914
  9. LUPRON DEPOT 45MG [Concomitant]

REACTIONS (1)
  - Constipation [None]

NARRATIVE: CASE EVENT DATE: 20201105
